FAERS Safety Report 14528001 (Version 14)
Quarter: 2021Q1

REPORT INFORMATION
  Report Type: Report from Study
  Country: None (occurrence: NL)
  Receive Date: 20180213
  Receipt Date: 20210128
  Transmission Date: 20210419
  Serious: Yes (Hospitalization)
  Sender: FDA-Public Use
  Company Number: NL-ABBVIE-17K-114-1969806-00

PATIENT
  Sex: Male
  Weight: 64 kg

DRUGS (11)
  1. DUODOPA [Suspect]
     Active Substance: CARBIDOPA\LEVODOPA
     Indication: PARKINSON^S DISEASE
     Dosage: MD: 7.0, CD: 3.6, ED: 2.0
     Route: 050
     Dates: start: 20170228, end: 2017
  2. DUODOPA [Suspect]
     Active Substance: CARBIDOPA\LEVODOPA
     Dosage: MD: 10.5, CD: 3.5, ED: 2.0; 16 HOUR ADMINISTRATION
     Route: 050
     Dates: start: 2017, end: 2017
  3. DUODOPA [Suspect]
     Active Substance: CARBIDOPA\LEVODOPA
     Dosage: MD: 11.5, CD: 3.4, ED: 2.0; 16 HOUR ADMINISTRATION
     Route: 050
  4. LEVODOPA/CARBIDOPA [Concomitant]
     Active Substance: CARBIDOPA\LEVODOPA
     Indication: PARKINSON^S DISEASE
  5. HYDROCHLOROTHIAZIDE. [Suspect]
     Active Substance: HYDROCHLOROTHIAZIDE
     Indication: PRODUCT USED FOR UNKNOWN INDICATION
     Route: 065
  6. DUODOPA [Suspect]
     Active Substance: CARBIDOPA\LEVODOPA
     Dosage: MD: 10.5, CD: 3.3, ED: 2.0; 16 HOUR ADMINISTRATION
     Route: 050
     Dates: start: 2017, end: 2017
  7. DUODOPA [Suspect]
     Active Substance: CARBIDOPA\LEVODOPA
     Dosage: MD: 11.5, CD: 3.3, ED: 2.0; 16 HOUR ADMINISTRATION
     Route: 050
     Dates: start: 20170401
  8. DUODOPA [Suspect]
     Active Substance: CARBIDOPA\LEVODOPA
     Dosage: MD 10.5 CD 3.3 ED 2.0
     Route: 050
     Dates: start: 2017, end: 2017
  9. SYMMETREL [Concomitant]
     Active Substance: AMANTADINE HYDROCHLORIDE
     Indication: PARKINSON^S DISEASE
     Dosage: 2 TO 3 TIMES A DAY
     Route: 065
  10. ROPINIROLE. [Concomitant]
     Active Substance: ROPINIROLE
     Indication: PARKINSON^S DISEASE
  11. DUODOPA [Suspect]
     Active Substance: CARBIDOPA\LEVODOPA
     Route: 050
     Dates: start: 2017, end: 2017

REACTIONS (45)
  - Irritability [Not Recovered/Not Resolved]
  - Agitation [Not Recovered/Not Resolved]
  - Stoma site discharge [Recovered/Resolved]
  - Stoma site reaction [Unknown]
  - Stoma site discharge [Recovered/Resolved]
  - Stoma site erythema [Recovered/Resolved]
  - Localised infection [Not Recovered/Not Resolved]
  - Tension [Not Recovered/Not Resolved]
  - Abnormal dreams [Not Recovered/Not Resolved]
  - Therapeutic product effect delayed [Recovered/Resolved]
  - Decreased appetite [Recovered/Resolved]
  - Dysphagia [Not Recovered/Not Resolved]
  - Influenza [Recovering/Resolving]
  - Memory impairment [Not Recovered/Not Resolved]
  - Mobility decreased [Not Recovered/Not Resolved]
  - Weight decreased [Recovered/Resolved]
  - Parkinson^s disease [Not Recovered/Not Resolved]
  - Sitting disability [Not Recovered/Not Resolved]
  - Muscle rigidity [Not Recovered/Not Resolved]
  - Musculoskeletal chest pain [Not Recovered/Not Resolved]
  - Stoma site pain [Recovered/Resolved]
  - Hallucination [Recovered/Resolved]
  - Somnolence [Not Recovered/Not Resolved]
  - Musculoskeletal stiffness [Not Recovered/Not Resolved]
  - Cognitive disorder [Not Recovered/Not Resolved]
  - Fibroma [Not Recovered/Not Resolved]
  - Aggression [Recovered/Resolved]
  - Foot deformity [Unknown]
  - Aphasia [Not Recovered/Not Resolved]
  - Fall [Not Recovered/Not Resolved]
  - Bradykinesia [Not Recovered/Not Resolved]
  - Skin abrasion [Not Recovered/Not Resolved]
  - Loss of consciousness [Recovered/Resolved]
  - Gait disturbance [Not Recovered/Not Resolved]
  - Stoma site erythema [Not Recovered/Not Resolved]
  - Freezing phenomenon [Not Recovered/Not Resolved]
  - Dyschezia [Recovering/Resolving]
  - Loss of personal independence in daily activities [Not Recovered/Not Resolved]
  - Fatigue [Not Recovered/Not Resolved]
  - Balance disorder [Not Recovered/Not Resolved]
  - Disturbance in attention [Not Recovered/Not Resolved]
  - On and off phenomenon [Not Recovered/Not Resolved]
  - Dyskinesia [Recovered/Resolved]
  - Device kink [Unknown]
  - Joint dislocation [Not Recovered/Not Resolved]

NARRATIVE: CASE EVENT DATE: 2017
